FAERS Safety Report 5077941-8 (Version None)
Quarter: 2006Q3

REPORT INFORMATION
  Report Type: 
  Country: None (occurrence: None)
  Receive Date: 20060808
  Receipt Date: 20060801
  Transmission Date: 20061208
  Serious: Yes (Hospitalization)
  Sender: FDA-Public Use
  Company Number: DEWYE448301AUG06

PATIENT
  Sex: Male

DRUGS (2)
  1. VENLAFAXINE HCL [Suspect]
     Indication: POST-TRAUMATIC STRESS DISORDER
     Dosage: 225 MG PER DAY ORAL
     Route: 048
     Dates: start: 20051001, end: 20060401
  2. AMOXICILLIN [Concomitant]

REACTIONS (5)
  - DRUG EXPOSURE DURING PREGNANCY [None]
  - IMMATURE RESPIRATORY SYSTEM [None]
  - IRON DEFICIENCY ANAEMIA [None]
  - NEONATAL DISORDER [None]
  - PREMATURE BABY [None]
